FAERS Safety Report 24154893 (Version 1)
Quarter: 2024Q3

REPORT INFORMATION
  Report Type: Spontaneous
  Country: PT (occurrence: PT)
  Receive Date: 20240731
  Receipt Date: 20240731
  Transmission Date: 20241017
  Serious: Yes (Other)
  Sender: AMGEN
  Company Number: PT-AMGEN-PRTSP2024147226

PATIENT
  Age: 46 Year
  Sex: Female

DRUGS (3)
  1. KYPROLIS [Suspect]
     Active Substance: CARFILZOMIB
     Indication: Plasma cell myeloma refractory
     Dosage: UNK
     Route: 065
     Dates: start: 202004
  2. CYCLOPHOSPHAMIDE [Concomitant]
     Active Substance: CYCLOPHOSPHAMIDE
     Indication: Plasma cell myeloma refractory
     Dosage: UNK
     Route: 065
     Dates: start: 202004
  3. DEXAMETHASONE [Concomitant]
     Active Substance: DEXAMETHASONE
     Indication: Plasma cell myeloma refractory
     Dosage: UNK
     Route: 065
     Dates: start: 202004

REACTIONS (8)
  - Cytopenia [Unknown]
  - Cytokine release syndrome [Unknown]
  - Plasma cell myeloma [Not Recovered/Not Resolved]
  - Hepatotoxicity [Unknown]
  - Neuropathy peripheral [Unknown]
  - Off label use [Unknown]
  - Asthenia [Unknown]
  - Hypertension [Unknown]

NARRATIVE: CASE EVENT DATE: 20200401
